FAERS Safety Report 8932409 (Version 1)
Quarter: 2012Q4

REPORT INFORMATION
  Report Type: 
  Country: RU (occurrence: RU)
  Receive Date: 20121128
  Receipt Date: 20121128
  Transmission Date: 20130627
  Serious: Yes (Hospitalization)
  Sender: FDA-Public Use
  Company Number: RU-ROCHE-1159575

PATIENT
  Sex: Male

DRUGS (2)
  1. AVASTIN [Suspect]
     Indication: GLIOBLASTOMA
     Route: 042
  2. TEMOZOLOMIDE [Concomitant]

REACTIONS (2)
  - Brain tumour operation [Unknown]
  - Nuclear magnetic resonance imaging abnormal [Not Recovered/Not Resolved]
